FAERS Safety Report 5022771-6 (Version None)
Quarter: 2006Q2

REPORT INFORMATION
  Report Type: 
  Country: None (occurrence: None)
  Receive Date: 20060609
  Receipt Date: 20060606
  Transmission Date: 20061013
  Serious: Yes (Hospitalization)
  Sender: FDA-Public Use
  Company Number: AU-MERCK-0606AUS00027

PATIENT
  Age: 70 Year
  Sex: Female

DRUGS (6)
  1. FOSAMAX [Suspect]
     Indication: OSTEOPOROSIS
     Route: 048
     Dates: start: 20060401, end: 20060501
  2. FOSINOPRIL SODIUM AND HYDROCHLOROTHIAZIDE [Concomitant]
     Route: 065
  3. ATENOLOL [Concomitant]
     Indication: HYPERTENSION
     Route: 065
  4. CANDESARTAN CILEXETIL [Concomitant]
     Route: 065
  5. LEVOTHYROXINE SODIUM [Concomitant]
     Indication: THYROID DISORDER
     Route: 065
     Dates: start: 19850101
  6. FELODIPINE [Concomitant]
     Route: 065

REACTIONS (4)
  - CATARACT OPERATION [None]
  - DIARRHOEA [None]
  - DYSPEPSIA [None]
  - ERUCTATION [None]
